FAERS Safety Report 11122721 (Version 1)
Quarter: 2015Q2

REPORT INFORMATION
  Report Type: Spontaneous
  Country: GB (occurrence: GB)
  Receive Date: 20150519
  Receipt Date: 20150519
  Transmission Date: 20150821
  Serious: Yes (Other)
  Sender: FDA-Public Use
  Company Number: GB-SA-2015SA061680

PATIENT
  Age: 77 Year
  Sex: Male

DRUGS (8)
  1. WARFARIN [Suspect]
     Active Substance: WARFARIN
     Dosage: 3 MG, UNK
     Route: 048
  2. PRADAXA [Suspect]
     Active Substance: DABIGATRAN ETEXILATE MESYLATE
     Indication: PAIN
     Dosage: UNK (60X1 CAPSULES)
     Route: 065
  3. FUROSEMIDE. [Suspect]
     Active Substance: FUROSEMIDE
     Dosage: UNK
     Route: 048
  4. LACTULOSE. [Suspect]
     Active Substance: LACTULOSE
     Dosage: UNK (3.1-3.7G/5ML)
     Route: 065
  5. RAMIPRIL. [Concomitant]
     Active Substance: RAMIPRIL
     Dosage: UNK
     Route: 048
  6. BISOPROLOL FUMARATE. [Suspect]
     Active Substance: BISOPROLOL FUMARATE
     Dosage: UNK
     Route: 048
  7. DACADIS MR [Suspect]
     Active Substance: GLICLAZIDE
     Dosage: UNK
     Route: 048
  8. WARFARIN [Suspect]
     Active Substance: WARFARIN
     Dosage: UNK
     Route: 048

REACTIONS (5)
  - Liver disorder [Unknown]
  - Constipation [Unknown]
  - Nightmare [Unknown]
  - Renal disorder [Unknown]
  - General physical health deterioration [Unknown]
